FAERS Safety Report 5510260-1 (Version None)
Quarter: 2007Q4

REPORT INFORMATION
  Report Type: 
  Country: None (occurrence: None)
  Receive Date: 20071030
  Receipt Date: 20070201
  Transmission Date: 20080405
  Serious: Yes (Other)
  Sender: FDA-Public Use
  Company Number: HQWYE352102FEB07

PATIENT
  Age: 65 Year
  Sex: Female

DRUGS (2)
  1. PREMARIN [Suspect]
     Dosage: 0.625 MG 1X PER 1 DAY, ORAL
     Route: 048
  2. PROMETRUIM (PROGESTERONE) [Concomitant]

REACTIONS (1)
  - PANCREATITIS [None]
